FAERS Safety Report 9384105 (Version 3)
Quarter: 2014Q2

REPORT INFORMATION
  Report Type: Spontaneous
  Country: IT (occurrence: IT)
  Receive Date: 20130705
  Receipt Date: 20140421
  Transmission Date: 20141212
  Serious: Yes (Hospitalization)
  Sender: FDA-Public Use
  Company Number: IT-BRISTOL-MYERS SQUIBB COMPANY-19058767

PATIENT
  Age: 75 Year
  Sex: Female

DRUGS (4)
  1. COUMADIN TABS 5 MG [Suspect]
     Indication: ATRIAL FIBRILLATION
     Route: 048
     Dates: start: 20120327, end: 20130120
  2. LOSARTAN POTASSIUM [Concomitant]
     Route: 048
  3. LANSOPRAZOLE [Concomitant]
     Route: 048
  4. TORVAST [Concomitant]
     Dosage: TABS

REACTIONS (2)
  - Epistaxis [Recovering/Resolving]
  - Dysarthria [Recovering/Resolving]
